FAERS Safety Report 20936515 (Version 2)
Quarter: 2023Q2

REPORT INFORMATION
  Report Type: Spontaneous
  Country: JP (occurrence: JP)
  Receive Date: 20220609
  Receipt Date: 20230608
  Transmission Date: 20230722
  Serious: Yes (Other)
  Sender: FDA-Public Use
  Company Number: JP-SA-2022SA207430

PATIENT
  Age: 77 Year
  Sex: Female

DRUGS (1)
  1. KEVZARA [Suspect]
     Active Substance: SARILUMAB
     Indication: Rheumatic disorder
     Dosage: DOSE: 39 TIMES
     Route: 058
     Dates: start: 20211215

REACTIONS (8)
  - Urogenital haemorrhage [Not Recovered/Not Resolved]
  - Vulval haemorrhage [Not Recovered/Not Resolved]
  - Colitis [Unknown]
  - Anal haemorrhage [Not Recovered/Not Resolved]
  - Haematochezia [Recovering/Resolving]
  - Gingival bleeding [Recovering/Resolving]
  - Gastritis [Unknown]
  - Platelet count decreased [Not Recovered/Not Resolved]

NARRATIVE: CASE EVENT DATE: 20220101
